FAERS Safety Report 7420687-9 (Version None)
Quarter: 2011Q2

REPORT INFORMATION
  Report Type: 
  Country: None (occurrence: None)
  Receive Date: 20110418
  Receipt Date: 20101118
  Transmission Date: 20111010
  Serious: Yes (Hospitalization)
  Sender: FDA-Public Use
  Company Number: US-BAYER-200939110NA

PATIENT
  Age: 17 Year
  Sex: Female
  Weight: 70 kg

DRUGS (31)
  1. ALBUTEROL [Concomitant]
     Indication: ASTHMA
     Dates: start: 20030101
  2. AZITHROMYCIN [Concomitant]
     Dates: start: 20071101
  3. CIPROFLOXACIN [Concomitant]
     Dosage: X 10 DAYS
     Route: 048
     Dates: start: 20081113
  4. FENTANYL [Concomitant]
     Indication: PAIN
     Route: 042
  5. HYDROCODE [Concomitant]
  6. YAZ [Suspect]
     Indication: CONTRACEPTION
     Dates: start: 20080401
  7. TUSSIONEX [Concomitant]
     Dosage: 1 TSP Q12HR
     Route: 048
     Dates: start: 20081101
  8. CEPHALEXIN [Concomitant]
     Dates: start: 20090701
  9. ONDANSETRON HYDROCHLORIDE [Concomitant]
     Indication: NAUSEA
     Route: 048
  10. DIMENHYDRINATE [Concomitant]
     Indication: PAIN
     Route: 042
  11. ACETAMINOPHEN [Concomitant]
  12. HYDROCODONE BITARTRATE [Concomitant]
     Dates: start: 20080901, end: 20081001
  13. CEFUROXIME [Concomitant]
     Dosage: FOR 14 DAYS
     Dates: start: 20081201
  14. MEPERIDINE HCL [Concomitant]
     Indication: CHILLS
  15. KETOROLAC TROMETHAMINE [Concomitant]
     Route: 042
  16. ZOLPIDEM [Concomitant]
     Dosage: 10 MG (DAILY DOSE), HS, ORAL
     Route: 048
  17. HYDROMORPHONE [Concomitant]
     Indication: PAIN
     Route: 042
  18. NAPROXEN (ALEVE) [Concomitant]
  19. METRONIDAZOLE [Concomitant]
     Dates: start: 20090301
  20. PROPOXYPHENE HYDROCHLORIDE [Concomitant]
  21. TRANSDERM SCOP [Concomitant]
     Dates: start: 20090701
  22. MORPHINE SULFATE [Concomitant]
     Route: 042
  23. AZITHROMYCIN [Concomitant]
     Dates: start: 20080101
  24. AZITHROMYCIN [Concomitant]
     Dates: start: 20081101
  25. AZITHROMYCIN [Concomitant]
     Dosage: 250 MG (DAILY DOSE), ,
  26. PERMETHRIN [Concomitant]
     Dosage: 5%; HAIRLINE TO TOES
     Route: 061
     Dates: start: 20080928
  27. TRAMADOL [Concomitant]
     Dates: start: 20090801
  28. ONDANSETRON HYDROCHLORIDE [Concomitant]
     Indication: VOMITING
     Route: 055
  29. ACETAMINOPHEN [Concomitant]
     Dates: start: 20081001, end: 20090401
  30. OXYCODONE HYDROCHLORIDE [Concomitant]
  31. ACETAMINOPHEN AND HYDROCODONE BITARTRATE [Concomitant]
     Indication: PAIN
     Dosage: 7.5MG/500MG: Q4-6HRS

REACTIONS (4)
  - CHOLECYSTITIS CHRONIC [None]
  - ABDOMINAL PAIN [None]
  - VOMITING [None]
  - NAUSEA [None]
